FAERS Safety Report 4897367-7 (Version None)
Quarter: 2006Q1

REPORT INFORMATION
  Report Type: 
  Country: None (occurrence: None)
  Receive Date: 20060201
  Receipt Date: 20060124
  Transmission Date: 20060701
  Serious: Yes (Hospitalization)
  Sender: FDA-Public Use
  Company Number: US-SOLVAY-00206000284

PATIENT
  Age: 908 Month
  Sex: Male
  Weight: 103.5 kg

DRUGS (8)
  1. ANDROGEL [Suspect]
     Indication: BLOOD TESTOSTERONE DECREASED
     Dosage: DAILY DOSE:  UNKNOWN
     Route: 062
     Dates: start: 20051111, end: 20051101
  2. ANDROGEL [Suspect]
     Dosage: DAILY DOSE: 5 GRAM(S)
     Route: 062
     Dates: start: 20051101, end: 20051211
  3. ALLOPURINOL [Concomitant]
     Indication: GOUT
     Dosage: DAILY DOSE: 300 MILLIGRAM(S)
     Route: 048
  4. COLCHICINE [Concomitant]
     Indication: GOUT
     Dosage: DAILY DOSE: 0.6 MILLIGRAM(S)
     Route: 048
  5. VYTORIN [Concomitant]
     Indication: BLOOD CHOLESTEROL INCREASED
     Dosage: DAILY DOSE:  UNKNOWN
     Route: 048
  6. UROXATRAL [Concomitant]
     Indication: BENIGN PROSTATIC HYPERPLASIA
     Dosage: DAILY DOSE: 10 MILLIGRAM(S)
     Route: 048
  7. VITAMINS [Concomitant]
     Indication: ILL-DEFINED DISORDER
     Dosage: DAILY DOSE:  UNKNOWN
     Route: 048
  8. HEART MEDICATIONS [Concomitant]
     Indication: CARDIAC DISORDER
     Dosage: DAILY DOSE:  UNKNOWN
     Route: 048
     Dates: start: 19910101, end: 20051201

REACTIONS (3)
  - ANGINA PECTORIS [None]
  - CHEST DISCOMFORT [None]
  - FEELING ABNORMAL [None]
